FAERS Safety Report 9852326 (Version 1)
Quarter: 2014Q1

REPORT INFORMATION
  Report Type: Spontaneous
  Country: US (occurrence: None)
  Receive Date: 20140127
  Receipt Date: 20140127
  Transmission Date: 20141002
  Serious: Yes (Other)
  Sender: FDA-Public Use
  Company Number: DSU-2014-00092

PATIENT
  Sex: Female

DRUGS (2)
  1. WELCHOL (COLESEVELAM HYDROCHLORIDE) (625 MILLIGRAM, TABLET) (COLESEVELAM HYDROCHLORIDE) [Suspect]
     Indication: IRRITABLE BOWEL SYNDROME
     Route: 048
  2. METFORMIN (METFORMIN) (METFORMIN) [Suspect]

REACTIONS (2)
  - Breast cancer [None]
  - Off label use [None]
